FAERS Safety Report 7908164-X (Version None)
Quarter: 2011Q4

REPORT INFORMATION
  Report Type: 
  Country: None (occurrence: None)
  Receive Date: 20111111
  Receipt Date: 20111103
  Transmission Date: 20120403
  Serious: No
  Sender: FDA-Public Use
  Company Number: US-BIOGENIDEC-2011BI041646

PATIENT
  Sex: Female

DRUGS (1)
  1. TYSABRI [Suspect]
     Indication: MULTIPLE SCLEROSIS
     Route: 042
     Dates: start: 20111012

REACTIONS (16)
  - FEELING HOT [None]
  - HYPERSOMNIA [None]
  - DEVICE BREAKAGE [None]
  - MALAISE [None]
  - MENTAL IMPAIRMENT [None]
  - APHASIA [None]
  - HEADACHE [None]
  - PARAESTHESIA [None]
  - CONFUSIONAL STATE [None]
  - FIBROMYALGIA [None]
  - FEELING ABNORMAL [None]
  - GAIT DISTURBANCE [None]
  - VISION BLURRED [None]
  - GENERAL PHYSICAL HEALTH DETERIORATION [None]
  - SPEECH DISORDER [None]
  - PAIN [None]
